FAERS Safety Report 5451690-6 (Version None)
Quarter: 2007Q3

REPORT INFORMATION
  Report Type: 
  Country: None (occurrence: None)
  Receive Date: 20070803
  Receipt Date: 20070504
  Transmission Date: 20080115
  Serious: Yes (Hospitalization, Other)
  Sender: FDA-Public Use
  Company Number: 36833

PATIENT
  Age: 50 Year
  Sex: Male
  Weight: 102.0593 kg

DRUGS (3)
  1. PROPOFOL [Suspect]
     Indication: ANAESTHESIA
     Dosage: 360 MG/OVER 15 MIN/IV
     Route: 042
     Dates: start: 20070423
  2. FENTANYL [Concomitant]
  3. VERSED [Concomitant]

REACTIONS (1)
  - PAIN [None]
